FAERS Safety Report 24795453 (Version 1)
Quarter: 2024Q4

REPORT INFORMATION
  Report Type: Spontaneous
  Country: US (occurrence: None)
  Receive Date: 20241231
  Receipt Date: 20241231
  Transmission Date: 20250114
  Serious: Yes (Other)
  Sender: Public
  Company Number: None

PATIENT
  Age: 79 Year
  Sex: Female
  Weight: 86.85 kg

DRUGS (2)
  1. XEMBIFY [Suspect]
     Active Substance: HUMAN IMMUNOGLOBULIN G
     Indication: HIV antibody
     Dosage: 12 G GRAM(S)  QW?
     Route: 058
  2. XEMBIFY [Suspect]
     Active Substance: HUMAN IMMUNOGLOBULIN G
     Indication: Hypergammaglobulinaemia

REACTIONS (3)
  - Infusion site pruritus [None]
  - Infusion site erythema [None]
  - Infusion site rash [None]

NARRATIVE: CASE EVENT DATE: 20241224
